FAERS Safety Report 8341122-2 (Version None)
Quarter: 2012Q2

REPORT INFORMATION
  Report Type: 
  Country: None (occurrence: None)
  Receive Date: 20120507
  Receipt Date: 20120427
  Transmission Date: 20120825
  Serious: Yes (Life-Threatening, Hospitalization)
  Sender: FDA-Public Use
  Company Number: BR-GLAXOSMITHKLINE-B0799575A

PATIENT
  Sex: Female
  Weight: 68 kg

DRUGS (8)
  1. AMLODIPINE [Concomitant]
     Indication: HYPERTENSION
     Dosage: 5MG PER DAY
  2. DIOSMIN [Concomitant]
     Indication: VARICOSE VEIN
  3. PROPAFENONE HCL [Suspect]
     Indication: ARRHYTHMIA
     Dosage: 300MG TWICE PER DAY
     Route: 048
     Dates: start: 20110504
  4. CLONAZEPAM [Concomitant]
     Indication: PANIC DISORDER
     Dosage: 1MG PER DAY
     Dates: start: 20110501
  5. UNKNOWN DRUG [Concomitant]
     Indication: ILL-DEFINED DISORDER
     Dosage: 400MG TWICE PER DAY
  6. ATENOLOL [Concomitant]
     Indication: ARRHYTHMIA
     Dosage: 75MG PER DAY
     Dates: start: 20090101, end: 20110501
  7. LIPLESS [Concomitant]
     Indication: THROMBOSIS PROPHYLAXIS
     Dosage: 100MG PER DAY
  8. CIPROFIBRATE [Concomitant]
     Dosage: 100MG PER DAY

REACTIONS (3)
  - ARRHYTHMIA [None]
  - DRUG DOSE OMISSION [None]
  - BLOOD IRON DECREASED [None]
